FAERS Safety Report 7003344-2 (Version None)
Quarter: 2010Q3

REPORT INFORMATION
  Report Type: 
  Country: None (occurrence: None)
  Receive Date: 20100920
  Receipt Date: 20100907
  Transmission Date: 20110219
  Serious: Yes (Hospitalization)
  Sender: FDA-Public Use
  Company Number: SA-WATSON-2010-12174

PATIENT
  Age: 36 Year
  Sex: Female

DRUGS (4)
  1. METRONIDAZOLE [Suspect]
     Indication: ABDOMINAL INFECTION
     Dosage: UNK
     Dates: start: 19981024
  2. RANITIDINE HYDROCHLORIDE (WATSON LABORATORIES) [Suspect]
     Indication: DYSPEPSIA
     Dosage: 150 MG, BID
     Route: 048
     Dates: start: 19981201
  3. CISAPRIDE [Suspect]
     Indication: DYSPEPSIA
     Dosage: 10 MG, TID
     Route: 048
     Dates: start: 19981201, end: 19981207
  4. AMIODARONE HCL [Suspect]
     Indication: TORSADE DE POINTES
     Dosage: UNK

REACTIONS (2)
  - DRUG INTERACTION [None]
  - TORSADE DE POINTES [None]
